FAERS Safety Report 14513904 (Version 3)
Quarter: 2018Q2

REPORT INFORMATION
  Report Type: Spontaneous
  Country: US (occurrence: US)
  Receive Date: 20180209
  Receipt Date: 20180517
  Transmission Date: 20180711
  Serious: Yes (Other)
  Sender: FDA-Public Use
  Company Number: US-DSJP-DSU-2017-148110

PATIENT

DRUGS (2)
  1. BENICAR [Suspect]
     Active Substance: OLMESARTAN MEDOXOMIL
     Indication: PRODUCT USED FOR UNKNOWN INDICATION
     Dosage: 20 MG, QD
     Route: 048
     Dates: start: 20060101, end: 20170811
  2. BENICAR [Suspect]
     Active Substance: OLMESARTAN MEDOXOMIL
     Dosage: 10 MG, QD

REACTIONS (13)
  - Diverticulum [Unknown]
  - Gastritis [Unknown]
  - Gastrointestinal bacterial overgrowth [Recovered/Resolved]
  - Colitis [Recovering/Resolving]
  - Constipation [Unknown]
  - Haemorrhoids [Unknown]
  - Gastric ulcer [Not Recovered/Not Resolved]
  - Diverticulitis [Unknown]
  - Peptic ulcer [Unknown]
  - Gastrointestinal motility disorder [Recovered/Resolved]
  - Weight decreased [Recovered/Resolved]
  - Gluten sensitivity [Recovered/Resolved]
  - Impaired gastric emptying [Unknown]

NARRATIVE: CASE EVENT DATE: 20100324
